FAERS Safety Report 21024007 (Version 1)
Quarter: 2022Q2

REPORT INFORMATION
  Report Type: Spontaneous
  Country: GB (occurrence: GB)
  Receive Date: 20220629
  Receipt Date: 20220629
  Transmission Date: 20220721
  Serious: Yes (Disabling, Other)
  Sender: FDA-Public Use
  Company Number: None

PATIENT
  Age: 74 Year
  Sex: Male
  Weight: 125 kg

DRUGS (22)
  1. ATORVASTATIN [Suspect]
     Active Substance: ATORVASTATIN
     Indication: Product used for unknown indication
     Dosage: 20 MILLIGRAM, QD (20MG DAILY)
     Route: 048
     Dates: start: 20220406, end: 20220623
  2. ALLOPURINOL [Concomitant]
     Active Substance: ALLOPURINOL
     Dosage: 2 DOSAGE FORM, BID (TWO DAILY)
     Route: 065
     Dates: start: 20220518
  3. AMLODIPINE [Concomitant]
     Active Substance: AMLODIPINE BESYLATE
     Dosage: 1 DOSAGE FORM, QD (1 TABLET ONCE A DAYNOTES FOR PATIENT: MONITORING ON 30/3/22)
     Route: 065
     Dates: start: 20220518
  4. BISOPROLOL [Concomitant]
     Active Substance: BISOPROLOL
     Dosage: 1 DOSAGE FORM, BID (1 TABLET TWICE A DAY)
     Route: 065
     Dates: start: 20220518
  5. BECONASE AQ [Concomitant]
     Active Substance: BECLOMETHASONE DIPROPIONATE MONOHYDRATE
     Dosage: UNK (USE REGULARLY)
     Route: 065
     Dates: start: 20220518
  6. CETIRIZINE [Concomitant]
     Active Substance: CETIRIZINE HYDROCHLORIDE
     Dosage: 1 DOSAGE FORM, QD (TAKE ONE TABLET DAILY)
     Route: 065
     Dates: start: 20220518
  7. INDAPAMIDE [Concomitant]
     Active Substance: INDAPAMIDE
     Dosage: 1 DOSAGE FORM, QD (1 TABLET ONCE A DAY)
     Route: 065
     Dates: start: 20220518
  8. LANSOPRAZOLE [Concomitant]
     Active Substance: LANSOPRAZOLE
     Dosage: UNK, AM (TAKE ONE OR TWO IN THE MORNING)
     Route: 065
     Dates: start: 20220518
  9. LEVOTHYROXINE [Concomitant]
     Active Substance: LEVOTHYROXINE
     Dosage: 1 DOSAGE FORM, QD (1 TABLET ONCE A DAY. REPEAT BLOOD TEST DUE SEPT 2022)
     Route: 065
     Dates: start: 20220623
  10. LEVOTHYROXINE [Concomitant]
     Active Substance: LEVOTHYROXINE
     Dosage: 1 DOSAGE FORM, QD (1 TABLET ONCE A DAY. REPEAT BLOOD TEST DUE SEPT 2022)
     Route: 065
     Dates: start: 20220518
  11. WARFARIN [Concomitant]
     Active Substance: WARFARIN
     Dosage: UNK (AS PER INR)
     Route: 065
     Dates: start: 20220518
  12. WARFARIN [Concomitant]
     Active Substance: WARFARIN
     Dosage: UNK (AS PER INR CLINIC)
     Route: 065
     Dates: start: 20220518
  13. WARFARIN [Concomitant]
     Active Substance: WARFARIN
     Dosage: UNK (AS PER INR)
     Route: 065
     Dates: start: 20220421
  14. WARFARIN [Concomitant]
     Active Substance: WARFARIN
     Dosage: UNK (AS PER INR CLINIC)
     Route: 065
     Dates: start: 20220421
  15. WARFARIN [Concomitant]
     Active Substance: WARFARIN
     Dosage: UNK, PRN (AS DIRECTED)
     Route: 065
     Dates: start: 20220518
  16. WARFARIN [Concomitant]
     Active Substance: WARFARIN
     Dosage: UNK (AS PER INR CLINIC)
     Route: 065
     Dates: start: 20220421, end: 20220518
  17. WARFARIN [Concomitant]
     Active Substance: WARFARIN
     Dosage: UNK (AS PER INR)
     Route: 065
     Dates: start: 20220421, end: 20220518
  18. WARFARIN [Concomitant]
     Active Substance: WARFARIN
     Dosage: UNK, PRN (AS DIRECTED)
     Route: 065
     Dates: start: 20220421, end: 20220518
  19. WARFARIN [Concomitant]
     Active Substance: WARFARIN
     Dosage: UNK (AS PER INR)
     Route: 065
     Dates: start: 20220421
  20. LEVOTHYROXINE [Concomitant]
     Active Substance: LEVOTHYROXINE
     Dosage: 1 DOSAGE FORM, QD (1 TABLET ONCE A DAY. REPEAT BLOOD TEST DUE SEPT 2022)
     Route: 065
     Dates: start: 20220518, end: 20220623
  21. WARFARIN [Concomitant]
     Active Substance: WARFARIN
     Dosage: UNK
     Route: 065
  22. WARFARIN [Concomitant]
     Active Substance: WARFARIN
     Dosage: UNK
     Route: 065

REACTIONS (1)
  - Pruritus [Recovering/Resolving]

NARRATIVE: CASE EVENT DATE: 20220427
